FAERS Safety Report 14680073 (Version 1)
Quarter: 2018Q1

REPORT INFORMATION
  Report Type: Spontaneous
  Country: HR (occurrence: HR)
  Receive Date: 20180326
  Receipt Date: 20180326
  Transmission Date: 20180509
  Serious: Yes (Other)
  Sender: FDA-Public Use
  Company Number: HR-UCBSA-2018011455

PATIENT
  Age: 22 Year
  Weight: 80 kg

DRUGS (4)
  1. KEPPRA [Suspect]
     Active Substance: LEVETIRACETAM
     Indication: PRODUCT USED FOR UNKNOWN INDICATION
     Dosage: 7500 MG DAILY
     Route: 048
     Dates: start: 20180129, end: 20180129
  2. BRUFEN [Suspect]
     Active Substance: IBUPROFEN
     Indication: PRODUCT USED FOR UNKNOWN INDICATION
     Dosage: 2000 MG, DAILY
     Route: 048
     Dates: start: 20180129, end: 20180129
  3. SYNOPEN MAST [Suspect]
     Active Substance: CHLOROPYRAMINE HYDROCHLORIDE
     Indication: PRODUCT USED FOR UNKNOWN INDICATION
     Dosage: DOSE : 1 (UNIT UNSPECIFIED) DAILY
     Dates: start: 20180129, end: 20180129
  4. NORMABEL [Suspect]
     Active Substance: DIAZEPAM
     Indication: PRODUCT USED FOR UNKNOWN INDICATION
     Dosage: 30 MG, DAILY
     Route: 048
     Dates: start: 20180129, end: 20180129

REACTIONS (4)
  - Somnolence [Unknown]
  - Abdominal pain [Unknown]
  - Suicide attempt [Unknown]
  - Intentional overdose [Unknown]

NARRATIVE: CASE EVENT DATE: 20180129
